FAERS Safety Report 6409673-5 (Version None)
Quarter: 2009Q4

REPORT INFORMATION
  Report Type: 
  Country: None (occurrence: None)
  Receive Date: 20091020
  Receipt Date: 20091020
  Transmission Date: 20100525
  Serious: No
  Sender: FDA-Public Use
  Company Number: None

PATIENT
  Sex: Female
  Weight: 66.6788 kg

DRUGS (1)
  1. RITUXIMAB(MARKETED AS RITUXAN) [Suspect]
     Indication: RHEUMATOID ARTHRITIS
     Dosage: OF 6 MONTH IV
     Route: 042
     Dates: start: 20080503, end: 20090127

REACTIONS (2)
  - PERIPHERAL ARTERIAL OCCLUSIVE DISEASE [None]
  - SKIN ULCER [None]
